FAERS Safety Report 4705974-7 (Version None)
Quarter: 2005Q2

REPORT INFORMATION
  Report Type: 
  Country: None (occurrence: None)
  Receive Date: 20050629
  Receipt Date: 20050621
  Transmission Date: 20051028
  Serious: Yes (Other)
  Sender: FDA-Public Use
  Company Number: 2005092380

PATIENT
  Age: 81 Year
  Sex: Female
  Weight: 41.7309 kg

DRUGS (5)
  1. CELEBREX [Suspect]
     Indication: PAIN
     Dosage: 100 MG (100 MG, 1 IN 1 D), ORAL
     Route: 048
     Dates: end: 20040101
  2. FOSAMAX [Concomitant]
  3. LIPITOR [Concomitant]
  4. LISINOPRIL [Concomitant]
  5. VITAMINS (VITAMINS) [Concomitant]

REACTIONS (4)
  - HAEMORRHAGE [None]
  - POLYP [None]
  - SKIN HAEMORRHAGE [None]
  - VAGINAL HAEMORRHAGE [None]
